FAERS Safety Report 11861828 (Version 1)
Quarter: 2015Q4

REPORT INFORMATION
  Report Type: Spontaneous
  Country: US (occurrence: US)
  Receive Date: 20151222
  Receipt Date: 20151222
  Transmission Date: 20160305
  Serious: Yes (Hospitalization, Other)
  Sender: FDA-Public Use
  Company Number: US-SHENZHEN TECHDOW PHARMACEUTICAL CO. LTD-US-2015TEC0000043

PATIENT
  Age: 47 Year
  Sex: Female

DRUGS (1)
  1. HEPARIN SODIUM INJECTION USP, PRESERVATIVE FREE [Suspect]
     Active Substance: HEPARIN SODIUM
     Indication: DEEP VEIN THROMBOSIS
     Dosage: UNK
     Route: 042

REACTIONS (14)
  - Perforation [Recovered/Resolved]
  - Heart sounds abnormal [Recovered/Resolved]
  - Pericardial haemorrhage [Recovered/Resolved]
  - Tachycardia [Recovered/Resolved]
  - Pericardial effusion [Recovered/Resolved]
  - Mental status changes [Recovered/Resolved]
  - Emotional distress [Recovered/Resolved]
  - Tachypnoea [Recovered/Resolved]
  - Blood potassium increased [None]
  - Hypotension [Recovered/Resolved]
  - Hypoxia [Recovered/Resolved]
  - Breath sounds abnormal [Recovered/Resolved]
  - Cardiac tamponade [Recovered/Resolved]
  - Blood creatinine increased [None]
